FAERS Safety Report 14046708 (Version 1)
Quarter: 2017Q4

REPORT INFORMATION
  Report Type: Spontaneous
  Country: US (occurrence: US)
  Receive Date: 20171005
  Receipt Date: 20171005
  Transmission Date: 20180321
  Serious: No
  Sender: FDA-Public Use
  Company Number: US-INDIVIOR LIMITED-INDV-103609-2017

PATIENT
  Sex: Female

DRUGS (2)
  1. BUPRENORPHINE/NALOXONE BRAND UNSPECIFIED [Suspect]
     Active Substance: BUPRENORPHINE\NALOXONE
     Indication: PRODUCT USED FOR UNKNOWN INDICATION
     Dosage: 1/4 (2MG) OF 8MG TABLET
     Route: 065
     Dates: end: 201707
  2. BUPRENORPHINE/NALOXONE BRAND UNSPECIFIED [Suspect]
     Active Substance: BUPRENORPHINE\NALOXONE
     Dosage: 1/4 OF 8MG TABLET
     Route: 065
     Dates: start: 20170726

REACTIONS (5)
  - Product preparation error [Unknown]
  - Insomnia [Recovered/Resolved]
  - Intentional underdose [Unknown]
  - Drug screen negative [Unknown]
  - Feeling abnormal [Recovered/Resolved]

NARRATIVE: CASE EVENT DATE: 20170724
